FAERS Safety Report 18527524 (Version 1)
Quarter: 2020Q4

REPORT INFORMATION
  Report Type: Spontaneous
  Country: US (occurrence: US)
  Receive Date: 20201119
  Receipt Date: 20201119
  Transmission Date: 20210114
  Serious: Yes (Hospitalization)
  Sender: FDA-Public Use
  Company Number: None

PATIENT
  Age: 77 Year
  Sex: Female

DRUGS (4)
  1. CABOMETYX [Concomitant]
     Active Substance: CABOZANTINIB S-MALATE
  2. VOTRIENT [Concomitant]
     Active Substance: PAZOPANIB HYDROCHLORIDE
  3. INLYTA [Suspect]
     Active Substance: AXITINIB
     Indication: METASTASES TO LUNG
     Route: 048
     Dates: start: 20200511
  4. ENBREL [Concomitant]
     Active Substance: ETANERCEPT

REACTIONS (6)
  - Gait inability [None]
  - Renal cancer [None]
  - Cerebrovascular accident [None]
  - Rheumatoid arthritis [None]
  - Hemiparesis [None]
  - Musculoskeletal disorder [None]

NARRATIVE: CASE EVENT DATE: 20201112
